FAERS Safety Report 8302608-X (Version None)
Quarter: 2012Q2

REPORT INFORMATION
  Report Type: 
  Country: None (occurrence: None)
  Receive Date: 20120420
  Receipt Date: 20120411
  Transmission Date: 20120825
  Serious: Yes (Death, Hospitalization)
  Sender: FDA-Public Use
  Company Number: FR-ROCHE-1023502

PATIENT
  Age: 22 Year
  Sex: Female

DRUGS (7)
  1. MABTHERA [Suspect]
     Dates: start: 20111017
  2. MABTHERA [Suspect]
     Indication: IDIOPATHIC THROMBOCYTOPENIC PURPURA
     Dates: start: 20110722, end: 20111007
  3. NPLATE [Suspect]
     Dates: start: 20110924
  4. NPLATE [Suspect]
     Dates: start: 20111001
  5. CYCLOSPORINE [Suspect]
     Indication: PRODUCT USED FOR UNKNOWN INDICATION
     Dates: start: 20020101
  6. ANTILYMPHOCYTE SERUM [Concomitant]
  7. NPLATE [Suspect]
     Indication: IDIOPATHIC THROMBOCYTOPENIC PURPURA
     Dates: start: 20110917

REACTIONS (1)
  - GUILLAIN-BARRE SYNDROME [None]
